FAERS Safety Report 6431794-1 (Version None)
Quarter: 2009Q4

REPORT INFORMATION
  Report Type: 
  Country: None (occurrence: None)
  Receive Date: 20091104
  Receipt Date: 20091022
  Transmission Date: 20100525
  Serious: Yes (Hospitalization)
  Sender: FDA-Public Use
  Company Number: 220001J09USA

PATIENT
  Age: 10 Year
  Sex: Male

DRUGS (1)
  1. SAIZEN [Suspect]
     Dates: start: 20090301, end: 20090101

REACTIONS (3)
  - DISCOMFORT [None]
  - LYMPHADENOPATHY [None]
  - NAUSEA [None]
